FAERS Safety Report 21147745 (Version 1)
Quarter: 2022Q3

REPORT INFORMATION
  Report Type: Spontaneous
  Country: US (occurrence: None)
  Receive Date: 20220729
  Receipt Date: 20220729
  Transmission Date: 20221027
  Serious: Yes (Death)
  Sender: FDA-Public Use
  Company Number: None

PATIENT
  Sex: Male
  Weight: 115 kg

DRUGS (3)
  1. IFOSFAMIDE [Suspect]
     Active Substance: IFOSFAMIDE
     Dates: end: 20220709
  2. TAXOL [Suspect]
     Active Substance: PACLITAXEL
     Dates: end: 20220705
  3. CISPLATIN [Suspect]
     Active Substance: CISPLATIN
     Dates: end: 20220709

REACTIONS (7)
  - Septic shock [None]
  - Dialysis [None]
  - Haemoglobin decreased [None]
  - Blood lactic acid increased [None]
  - Neutrophil count decreased [None]
  - Platelet count decreased [None]
  - White blood cell count decreased [None]

NARRATIVE: CASE EVENT DATE: 20220715
